FAERS Safety Report 25147489 (Version 1)
Quarter: 2025Q2

REPORT INFORMATION
  Report Type: Report from Study
  Country: US (occurrence: US)
  Receive Date: 20250402
  Receipt Date: 20250402
  Transmission Date: 20250717
  Serious: Yes (Hospitalization)
  Sender: ABBVIE
  Company Number: US-ABBVIE-4772879

PATIENT
  Age: 75 Year
  Sex: Male

DRUGS (2)
  1. IMBRUVICA [Suspect]
     Active Substance: IBRUTINIB
     Indication: Product used for unknown indication
     Route: 048
  2. IMBRUVICA [Suspect]
     Active Substance: IBRUTINIB
     Indication: Product used for unknown indication
     Dosage: 420 DOSAGE FORM
     Route: 048

REACTIONS (8)
  - Animal scratch [Unknown]
  - Increased tendency to bruise [Unknown]
  - Dizziness postural [Unknown]
  - Headache [Not Recovered/Not Resolved]
  - Full blood count decreased [Unknown]
  - Spondylitis [Unknown]
  - Fatigue [Unknown]
  - Wound infection [Unknown]

NARRATIVE: CASE EVENT DATE: 20250301
